FAERS Safety Report 8813035 (Version 1)
Quarter: 2012Q4

REPORT INFORMATION
  Report Type: 
  Country: GB (occurrence: GB)
  Receive Date: 20120927
  Receipt Date: 20120927
  Transmission Date: 20130627
  Serious: Yes (Other)
  Sender: FDA-Public Use
  Company Number: GB-ASTRAZENECA-2012SE73109

PATIENT
  Sex: Female

DRUGS (1)
  1. SEROQUEL [Suspect]
     Route: 048

REACTIONS (5)
  - Electrocardiogram QT prolonged [Unknown]
  - Loss of consciousness [Unknown]
  - Syncope [Unknown]
  - Hangover [Unknown]
  - Sluggishness [Unknown]
